FAERS Safety Report 18443974 (Version 1)
Quarter: 2020Q4

REPORT INFORMATION
  Report Type: Spontaneous
  Country: FR (occurrence: FR)
  Receive Date: 20201030
  Receipt Date: 20201030
  Transmission Date: 20210114
  Serious: Yes (Other)
  Sender: FDA-Public Use
  Company Number: FR-ABBVIE-20K-056-3624283-00

PATIENT
  Age: 69 Year
  Sex: Female

DRUGS (11)
  1. AZITHROMYCIN ANHYDROUS. [Concomitant]
     Active Substance: AZITHROMYCIN ANHYDROUS
     Indication: HYPERTENSION
     Dosage: UNK
     Route: 065
  2. EVEROLIMUS. [Interacting]
     Active Substance: EVEROLIMUS
     Indication: LUNG TRANSPLANT
     Dosage: 1.25 MG, BID
     Route: 065
  3. MONTELUKAST [Concomitant]
     Active Substance: MONTELUKAST SODIUM
     Indication: HYPERTENSION
  4. CITALOPRAM [Concomitant]
     Active Substance: CITALOPRAM HYDROBROMIDE
     Indication: DEPRESSION
     Dosage: UNK
     Route: 065
  5. LOPINAVIR/RITONAVIR [Interacting]
     Active Substance: LOPINAVIR\RITONAVIR
     Indication: COVID-19
  6. PREDNISONE. [Suspect]
     Active Substance: PREDNISONE
     Indication: LUNG TRANSPLANT
     Dosage: 5 MG, QD
     Route: 065
  7. LOPINAVIR/RITONAVIR [Suspect]
     Active Substance: LOPINAVIR\RITONAVIR
     Indication: IMMUNOSUPPRESSANT DRUG THERAPY
     Dosage: 8 DOSES
     Route: 048
  8. AZITHROMYCIN ANHYDROUS. [Concomitant]
     Active Substance: AZITHROMYCIN ANHYDROUS
     Indication: PROPHYLAXIS AGAINST TRANSPLANT REJECTION
  9. ENVARSUS XR [Interacting]
     Active Substance: TACROLIMUS
     Indication: LUNG TRANSPLANT REJECTION
     Dosage: 1 MG, QD
     Route: 065
  10. ENVARSUS XR [Interacting]
     Active Substance: TACROLIMUS
     Indication: LUNG TRANSPLANT REJECTION
  11. MONTELUKAST [Concomitant]
     Active Substance: MONTELUKAST SODIUM
     Indication: PROPHYLAXIS AGAINST TRANSPLANT REJECTION
     Dosage: UNK
     Route: 065

REACTIONS (9)
  - SARS-CoV-2 test positive [Recovered/Resolved]
  - Tremor [Recovered/Resolved]
  - Diarrhoea [Recovered/Resolved]
  - Lung infiltration [Recovered/Resolved]
  - Drug interaction [Recovered/Resolved]
  - Product use in unapproved indication [Unknown]
  - Vomiting [Recovered/Resolved]
  - Off label use [Unknown]
  - Immunosuppressant drug level increased [Unknown]

NARRATIVE: CASE EVENT DATE: 202003
